FAERS Safety Report 6258726-3 (Version None)
Quarter: 2009Q3

REPORT INFORMATION
  Report Type: 
  Country: None (occurrence: None)
  Receive Date: 20090707
  Receipt Date: 20090706
  Transmission Date: 20100115
  Serious: Yes (Death, Life-Threatening, Other)
  Sender: FDA-Public Use
  Company Number: B0570074A

PATIENT
  Age: 40 Year
  Sex: Male
  Weight: 41 kg

DRUGS (13)
  1. FORTUM [Suspect]
     Dosage: 2G TWICE PER DAY
     Route: 042
     Dates: start: 20090321, end: 20090323
  2. AMIKACIN [Suspect]
     Dosage: 500MG TWICE PER DAY
     Route: 065
     Dates: start: 20090321, end: 20090323
  3. FLUCONAZOLE [Concomitant]
     Indication: DRUG USE FOR UNKNOWN INDICATION
     Route: 065
     Dates: start: 20090321, end: 20090502
  4. UNKNOWN DRUG [Concomitant]
     Indication: DRUG USE FOR UNKNOWN INDICATION
     Route: 065
  5. MANITOL [Concomitant]
     Indication: DRUG USE FOR UNKNOWN INDICATION
     Route: 065
  6. AMINOPHYLLINE [Concomitant]
     Indication: DRUG USE FOR UNKNOWN INDICATION
     Route: 065
  7. NEVIRAPINE [Concomitant]
  8. LAMIVUDINE [Concomitant]
  9. STAVUDINE [Concomitant]
  10. HYDROCORTISONE [Concomitant]
  11. AVIL [Concomitant]
  12. RANITIDINE [Concomitant]
  13. PHENYTOIN [Concomitant]

REACTIONS (4)
  - ERYTHEMA [None]
  - EYE INFLAMMATION [None]
  - HAEMORRHAGE INTRACRANIAL [None]
  - STEVENS-JOHNSON SYNDROME [None]
